FAERS Safety Report 8621771-4 (Version None)
Quarter: 2012Q3

REPORT INFORMATION
  Report Type: 
  Country: None (occurrence: None)
  Receive Date: 20120821
  Receipt Date: 20120821
  Transmission Date: 20120928
  Serious: No
  Sender: FDA-Public Use
  Company Number: None

PATIENT
  Sex: Male

DRUGS (2)
  1. VELCADE [Suspect]
     Indication: MULTIPLE MYELOMA
     Dosage: IV
  2. REVLIMID [Suspect]

REACTIONS (3)
  - EMBOLISM [None]
  - FEELING ABNORMAL [None]
  - NEUROPATHY PERIPHERAL [None]
